FAERS Safety Report 11680669 (Version 3)
Quarter: 2015Q4

REPORT INFORMATION
  Report Type: Spontaneous
  Country: US (occurrence: US)
  Receive Date: 20151027
  Receipt Date: 20151110
  Transmission Date: 20160304
  Serious: No
  Sender: FDA-Public Use
  Company Number: US-ELI_LILLY_AND_COMPANY-US201009003728

PATIENT
  Sex: Female

DRUGS (2)
  1. FORTEO [Suspect]
     Active Substance: TERIPARATIDE
     Indication: OSTEOPOROSIS
     Dosage: 20 UG, DAILY (1/D)
     Dates: start: 20100813
  2. FORTEO [Suspect]
     Active Substance: TERIPARATIDE
     Dosage: 20 UG, DAILY (1/D)
     Route: 065

REACTIONS (9)
  - Fall [Unknown]
  - Influenza [Unknown]
  - Constipation [Unknown]
  - Facial bones fracture [Unknown]
  - Post-traumatic neck syndrome [Unknown]
  - Pneumonia [Unknown]
  - Foot fracture [Unknown]
  - Injection site pain [Unknown]
  - Malaise [Unknown]
